FAERS Safety Report 4715806-9 (Version None)
Quarter: 2005Q3

REPORT INFORMATION
  Report Type: 
  Country: None (occurrence: None)
  Receive Date: 20050715
  Receipt Date: 20050715
  Transmission Date: 20060218
  Serious: Yes (Hospitalization)
  Sender: FDA-Public Use
  Company Number: None

PATIENT
  Sex: Male

DRUGS (10)
  1. LOVENOX [Suspect]
     Indication: LEG AMPUTATION
     Dosage: 40 MG DAILY SUBCUTANEO
     Route: 058
     Dates: start: 20050301, end: 20050305
  2. TRAVOPROST [Concomitant]
  3. PROMETHAZINE [Concomitant]
  4. NYSTATIN [Concomitant]
  5. METOPROLOL [Concomitant]
  6. DOCUSATE [Concomitant]
  7. SIMETHICONE [Concomitant]
  8. PIPERACILLIN -TAZOBACTAM [Concomitant]
  9. PANTOPRAZOL [Concomitant]
  10. OXYCODONE AND ACETAMINOPHEN [Concomitant]

REACTIONS (2)
  - FAECES DISCOLOURED [None]
  - HAEMOGLOBIN DECREASED [None]
